FAERS Safety Report 24809459 (Version 1)
Quarter: 2025Q1

REPORT INFORMATION
  Report Type: Spontaneous
  Country: US (occurrence: None)
  Receive Date: 20250103
  Receipt Date: 20250103
  Transmission Date: 20250408
  Serious: Yes (Hospitalization)
  Sender: FDA-CTU
  Company Number: None

PATIENT
  Age: 43 Year
  Sex: Female

DRUGS (1)
  1. DOVATO [Suspect]
     Active Substance: DOLUTEGRAVIR SODIUM\LAMIVUDINE
     Indication: HIV infection
     Dosage: OTHER QUANTITY : 50/300MG;?FREQUENCY : DAILY;?
     Route: 048
     Dates: start: 202308

REACTIONS (3)
  - Pneumonia [None]
  - Cyanosis [None]
  - Hyperglycaemia [None]

NARRATIVE: CASE EVENT DATE: 20241206
